FAERS Safety Report 19503238 (Version 1)
Quarter: 2021Q3

REPORT INFORMATION
  Report Type: Spontaneous
  Country: US (occurrence: US)
  Receive Date: 20210707
  Receipt Date: 20210707
  Transmission Date: 20211014
  Serious: Yes (Other)
  Sender: FDA-Public Use
  Company Number: US-ROCHE-2659865

PATIENT
  Sex: Female
  Weight: 127.12 kg

DRUGS (8)
  1. PREDNISONE. [Concomitant]
     Active Substance: PREDNISONE
     Route: 051
     Dates: start: 202007, end: 202008
  2. PREDNISONE. [Concomitant]
     Active Substance: PREDNISONE
     Route: 051
     Dates: start: 20200623, end: 202007
  3. ESOMEPRAZOLE. [Concomitant]
     Active Substance: ESOMEPRAZOLE MAGNESIUM
     Indication: GASTROOESOPHAGEAL REFLUX DISEASE
     Route: 051
     Dates: start: 20200623
  4. FOLIC ACID. [Concomitant]
     Active Substance: FOLIC ACID
     Route: 051
     Dates: start: 20200623
  5. PREDNISONE. [Concomitant]
     Active Substance: PREDNISONE
     Route: 051
     Dates: start: 20200808
  6. CELLCEPT [Suspect]
     Active Substance: MYCOPHENOLATE MOFETIL\MYCOPHENOLATE MOFETIL HYDROCHLORIDE
     Indication: MUSCLE NECROSIS
     Dosage: YES
     Route: 051
     Dates: start: 20200623
  7. LINZESS [Concomitant]
     Active Substance: LINACLOTIDE
     Indication: CONSTIPATION
     Route: 051
     Dates: start: 20200623
  8. LEVOTHYROXINE. [Concomitant]
     Active Substance: LEVOTHYROXINE
     Route: 051
     Dates: start: 202006

REACTIONS (3)
  - Intentional product use issue [Unknown]
  - Off label use [Unknown]
  - Device related infection [Unknown]
